FAERS Safety Report 5006494-5 (Version None)
Quarter: 2006Q2

REPORT INFORMATION
  Report Type: 
  Country: None (occurrence: None)
  Receive Date: 20060516
  Receipt Date: 20060428
  Transmission Date: 20061013
  Serious: Yes (Hospitalization)
  Sender: FDA-Public Use
  Company Number: JP200605000015

PATIENT
  Age: 77 Year
  Sex: Male

DRUGS (3)
  1. GEMZAR [Suspect]
     Indication: TRANSITIONAL CELL CARCINOMA
     Dosage: INTRAVENOUS
     Route: 042
  2. CISPLATIN [Concomitant]
  3. DOCETAXEL [Concomitant]

REACTIONS (2)
  - PNEUMONIA [None]
  - UPPER RESPIRATORY TRACT INFLAMMATION [None]
